FAERS Safety Report 7126658-4 (Version None)
Quarter: 2010Q4

REPORT INFORMATION
  Report Type: 
  Country: None (occurrence: None)
  Receive Date: 20101129
  Receipt Date: 20101117
  Transmission Date: 20110411
  Serious: No
  Sender: FDA-Public Use
  Company Number: DK-NAPPMUNDI-GBR-2010-0007155

PATIENT
  Sex: Male

DRUGS (2)
  1. NORSPAN [Suspect]
     Indication: PRODUCT USED FOR UNKNOWN INDICATION
     Dosage: 10 MCG, Q1H
     Route: 062
  2. NORSPAN [Suspect]
     Dosage: 5 MCG, Q1H
     Route: 062

REACTIONS (2)
  - DRUG EFFECT INCREASED [None]
  - OVERDOSE [None]
